FAERS Safety Report 6213276-5 (Version None)
Quarter: 2009Q2

REPORT INFORMATION
  Report Type: 
  Country: None (occurrence: None)
  Receive Date: 20090603
  Receipt Date: 20090529
  Transmission Date: 20091009
  Serious: Yes (Life-Threatening, Hospitalization, Disabling)
  Sender: FDA-Public Use
  Company Number: MY-MERCK-0906MYS00001

PATIENT

DRUGS (2)
  1. COZAAR [Suspect]
     Indication: HYPERTENSION
     Route: 048
     Dates: start: 20070101, end: 20090515
  2. MORPHINE [Concomitant]
     Route: 065
     Dates: start: 20090429, end: 20090501

REACTIONS (2)
  - DIVERTICULITIS [None]
  - RENAL FAILURE [None]
